FAERS Safety Report 10585920 (Version 2)
Quarter: 2014Q4

REPORT INFORMATION
  Report Type: Spontaneous
  Country: FR (occurrence: FR)
  Receive Date: 20141114
  Receipt Date: 20141212
  Transmission Date: 20150529
  Serious: Yes (Death, Hospitalization, Other)
  Sender: FDA-Public Use
  Company Number: FR-GILEAD-2014-0121927

PATIENT
  Age: 56 Year
  Sex: Male
  Weight: 54 kg

DRUGS (14)
  1. COPEGUS [Suspect]
     Active Substance: RIBAVIRIN
     Indication: HEPATITIS C
     Dosage: 2 DF, QD
     Route: 048
     Dates: start: 20140207, end: 20140808
  2. ALDACTONE [Concomitant]
     Active Substance: SPIRONOLACTONE
  3. AVLOCARDYL                         /00030001/ [Concomitant]
     Active Substance: PROPRANOLOL HYDROCHLORIDE
  4. DOLIPRANE [Concomitant]
     Active Substance: ACETAMINOPHEN
  5. FORSTEO [Concomitant]
     Active Substance: TERIPARATIDE
  6. TRUVADA [Concomitant]
     Active Substance: EMTRICITABINE\TENOFOVIR DISOPROXIL FUMARATE
     Indication: HIV INFECTION
     Dosage: UNK
     Route: 065
     Dates: end: 20140704
  7. SUSTIVA [Concomitant]
     Active Substance: EFAVIRENZ
  8. PREVISCAN                          /00789001/ [Concomitant]
     Active Substance: FLUINDIONE
  9. UVEDOSE [Concomitant]
     Active Substance: CHOLECALCIFEROL
  10. SPIRIVA [Concomitant]
     Active Substance: TIOTROPIUM BROMIDE MONOHYDRATE
  11. BACTRIM [Concomitant]
     Active Substance: SULFAMETHOXAZOLE\TRIMETHOPRIM
  12. SOVALDI [Suspect]
     Active Substance: SOFOSBUVIR
     Indication: HEPATITIS C
     Dosage: 400 MG, QD
     Route: 048
     Dates: start: 20140207, end: 20140808
  13. KIVEXA [Concomitant]
     Active Substance: ABACAVIR SULFATE\LAMIVUDINE
     Indication: HIV INFECTION
     Dosage: UNK
     Route: 065
     Dates: start: 20140704
  14. SYMBICORT [Concomitant]
     Active Substance: BUDESONIDE\FORMOTEROL FUMARATE DIHYDRATE

REACTIONS (4)
  - Gastrointestinal haemorrhage [Fatal]
  - Hepatic encephalopathy [Fatal]
  - Hepatic cirrhosis [Fatal]
  - Anaemia macrocytic [Recovering/Resolving]

NARRATIVE: CASE EVENT DATE: 201407
